FAERS Safety Report 4798417-9 (Version None)
Quarter: 2005Q4

REPORT INFORMATION
  Report Type: 
  Country: None (occurrence: None)
  Receive Date: 20051011
  Receipt Date: 20050930
  Transmission Date: 20060501
  Serious: Yes (Hospitalization, Other)
  Sender: FDA-Public Use
  Company Number: KII-2005-0018827

PATIENT
  Age: 51 Year
  Sex: Female

DRUGS (7)
  1. OXYCONTIN [Suspect]
  2. ACETAMINOPHEN [Suspect]
     Dosage: ORAL
     Route: 048
  3. VALIUM [Suspect]
  4. CYCLOBENZAPRINE HCL [Suspect]
  5. OTHER HYPNOTICS AND SEDATIVES () [Suspect]
  6. PROTON PUMP INHIBITOR () [Suspect]
  7. BARBITURATES () [Suspect]

REACTIONS (11)
  - ALANINE AMINOTRANSFERASE INCREASED [None]
  - AMMONIA INCREASED [None]
  - ASPARTATE AMINOTRANSFERASE INCREASED [None]
  - BLOOD ALKALINE PHOSPHATASE INCREASED [None]
  - CONFUSIONAL STATE [None]
  - DEPRESSED LEVEL OF CONSCIOUSNESS [None]
  - LABORATORY TEST INTERFERENCE [None]
  - LETHARGY [None]
  - MULTIPLE DRUG OVERDOSE [None]
  - PROTHROMBIN TIME PROLONGED [None]
  - SINUS TACHYCARDIA [None]
